FAERS Safety Report 16192082 (Version 1)
Quarter: 2019Q2

REPORT INFORMATION
  Report Type: Spontaneous
  Country: FR (occurrence: FR)
  Receive Date: 20190412
  Receipt Date: 20190412
  Transmission Date: 20190711
  Serious: Yes (Hospitalization)
  Sender: FDA-Public Use
  Company Number: FR-TEVA-2019-FR-1035826

PATIENT
  Age: 91 Year
  Sex: Female

DRUGS (6)
  1. MACROGOL (DISTEARATE DE) [Concomitant]
     Active Substance: POLYETHYLENE GLYCOLS
  2. IMOVANE [Concomitant]
     Active Substance: ZOPICLONE
  3. SERESTA 10 MG, COMPRIM? [Concomitant]
     Active Substance: OXAZEPAM
  4. DAFALGAN [Concomitant]
     Active Substance: ACETAMINOPHEN
  5. KARDEGIC [Concomitant]
     Active Substance: ASPIRIN DL-LYSINE
  6. IRBESARTAN. [Suspect]
     Active Substance: IRBESARTAN
     Dosage: 300 MILLIGRAM DAILY;
     Route: 048
     Dates: end: 20190301

REACTIONS (1)
  - Hyponatraemia [Recovered/Resolved]

NARRATIVE: CASE EVENT DATE: 20190303
